FAERS Safety Report 8020082-8 (Version None)
Quarter: 2012Q1

REPORT INFORMATION
  Report Type: 
  Country: None (occurrence: None)
  Receive Date: 20120103
  Receipt Date: 20111228
  Transmission Date: 20120608
  Serious: Yes (Hospitalization)
  Sender: FDA-Public Use
  Company Number: FR-JNJFOC-20120100382

PATIENT
  Sex: Male

DRUGS (13)
  1. XARELTO [Suspect]
     Indication: THROMBOSIS PROPHYLAXIS
     Route: 048
     Dates: start: 20110726, end: 20110801
  2. CEFUROXIME [Concomitant]
     Dates: start: 20110801, end: 20110803
  3. MORPHINE SULFATE [Concomitant]
     Route: 048
  4. AMLODIPINE BESYLATE [Concomitant]
     Route: 048
  5. KETOPROFEN [Concomitant]
     Route: 048
     Dates: end: 20110802
  6. XARELTO [Suspect]
     Indication: KNEE OPERATION
     Route: 048
     Dates: start: 20110726, end: 20110801
  7. IRON POLYSACCHARIDES COMPLEX [Concomitant]
     Route: 042
     Dates: start: 20110727, end: 20110728
  8. KETOPROFEN [Concomitant]
     Route: 042
     Dates: start: 20110726, end: 20110726
  9. TRAMADOL HCL [Concomitant]
     Route: 048
  10. NEXIUM [Concomitant]
     Route: 048
     Dates: start: 20110727
  11. ZOFRAN [Concomitant]
     Route: 042
     Dates: start: 20110726, end: 20110728
  12. LIPUR [Concomitant]
     Route: 048
  13. MORPHINE SULFATE [Concomitant]
     Route: 048

REACTIONS (1)
  - DEEP VEIN THROMBOSIS [None]
